FAERS Safety Report 7898738-7 (Version None)
Quarter: 2011Q4

REPORT INFORMATION
  Report Type: 
  Country: None (occurrence: None)
  Receive Date: 20111107
  Receipt Date: 20111028
  Transmission Date: 20120403
  Serious: Yes (Hospitalization)
  Sender: FDA-Public Use
  Company Number: NL-MEDIMMUNE-MEDI-0012182

PATIENT
  Sex: Female
  Weight: 6.2 kg

DRUGS (6)
  1. SYNAGIS [Suspect]
     Route: 030
     Dates: start: 20101209, end: 20101209
  2. DOMPERIDONE [Concomitant]
     Dates: start: 20100101
  3. ESOMEPRAZOLE MAGNESIUM [Concomitant]
     Dates: start: 20100101
  4. HYDROCHLOROTHIAZIDE [Concomitant]
     Dates: start: 20100101
  5. SYNAGIS [Suspect]
     Route: 030
     Dates: start: 20110106, end: 20110106
  6. SPIRONOLACTONE [Concomitant]
     Dates: start: 20100101

REACTIONS (4)
  - DYSPNOEA [None]
  - RESPIRATORY SYNCYTIAL VIRUS TEST POSITIVE [None]
  - INFANTILE SPITTING UP [None]
  - COUGH [None]
